FAERS Safety Report 8043086-8 (Version None)
Quarter: 2012Q1

REPORT INFORMATION
  Report Type: 
  Country: None (occurrence: None)
  Receive Date: 20120112
  Receipt Date: 20120110
  Transmission Date: 20120608
  Serious: Yes (Other)
  Sender: FDA-Public Use
  Company Number: US-ABBOTT-11P-163-0862450-00

PATIENT
  Sex: Female

DRUGS (6)
  1. IMITREX [Concomitant]
     Indication: MIGRAINE
     Dosage: ONE AS NEEDED
     Route: 048
  2. LEXAPRO [Concomitant]
     Indication: DEPRESSION
     Route: 048
  3. HUMIRA [Suspect]
  4. WELLBUTRIN XL [Concomitant]
     Indication: DEPRESSION
     Route: 048
  5. ASACOL [Concomitant]
     Indication: COLITIS ULCERATIVE
     Dosage: SIX TO EIGHT DAILY
     Route: 048
  6. HUMIRA [Suspect]
     Indication: PSORIASIS
     Dates: start: 20101201

REACTIONS (6)
  - RASH MACULO-PAPULAR [None]
  - ERYTHEMA [None]
  - DYSMENORRHOEA [None]
  - MENSTRUAL DISORDER [None]
  - SKIN DISCOLOURATION [None]
  - PSORIASIS [None]
